FAERS Safety Report 7116108-6 (Version None)
Quarter: 2010Q4

REPORT INFORMATION
  Report Type: 
  Country: None (occurrence: None)
  Receive Date: 20101122
  Receipt Date: 20101110
  Transmission Date: 20110411
  Serious: Yes (Hospitalization, Other)
  Sender: FDA-Public Use
  Company Number: US-PFIZER INC-US-WYE-H18013610

PATIENT
  Sex: Female
  Weight: 94.785 kg

DRUGS (5)
  1. PRISTIQ [Suspect]
     Indication: DEPRESSION
     Dosage: 50 MG, 1X/DAY
     Route: 048
     Dates: start: 20100501, end: 20100901
  2. DEPAKOTE [Suspect]
     Indication: CONVULSION
     Dosage: 250 MG, 2X/DAY
     Dates: start: 20100829, end: 20101001
  3. DEPAKOTE [Suspect]
     Dosage: UNK
     Dates: start: 20101004
  4. COZAAR [Concomitant]
     Indication: HYPERTENSION
     Dosage: UNK
     Dates: start: 20100501
  5. LEXAPRO [Concomitant]
     Indication: DEPRESSION
     Dosage: UNK
     Dates: end: 20100501

REACTIONS (6)
  - CONVULSION [None]
  - HYPOAESTHESIA [None]
  - HYPOAESTHESIA FACIAL [None]
  - HYPOAESTHESIA ORAL [None]
  - MIGRAINE [None]
  - SWOLLEN TONGUE [None]
